FAERS Safety Report 5296515-7 (Version None)
Quarter: 2007Q2

REPORT INFORMATION
  Report Type: 
  Country: None (occurrence: None)
  Receive Date: 20070413
  Receipt Date: 20070402
  Transmission Date: 20071010
  Serious: Yes (Other)
  Sender: FDA-Public Use
  Company Number: US-ROCHE-490895

PATIENT
  Age: 61 Year
  Sex: Female

DRUGS (2)
  1. BONIVA [Suspect]
     Indication: OSTEOPOROSIS
     Dosage: PATIENT REPORTED DOSAGE FORM AS IV.
     Route: 042
  2. COUMADIN [Concomitant]

REACTIONS (1)
  - ARRHYTHMIA [None]
